FAERS Safety Report 11446544 (Version 4)
Quarter: 2016Q1

REPORT INFORMATION
  Report Type: Spontaneous
  Country: US (occurrence: US)
  Receive Date: 20150902
  Receipt Date: 20160309
  Transmission Date: 20160525
  Serious: Yes (Hospitalization, Other)
  Sender: FDA-Public Use
  Company Number: US-BAYER-2015-413381

PATIENT
  Age: 37 Year
  Sex: Female

DRUGS (1)
  1. MIRENA [Suspect]
     Active Substance: LEVONORGESTREL
     Indication: CONTRACEPTION
     Dosage: 20 MCG/24HR, CONT
     Route: 015
     Dates: start: 20140109, end: 20141215

REACTIONS (8)
  - Emotional distress [None]
  - Device dislocation [None]
  - Anxiety [None]
  - Pain [None]
  - Uterine perforation [None]
  - Injury [None]
  - Depression [None]
  - Gastrointestinal injury [None]

NARRATIVE: CASE EVENT DATE: 2014
